FAERS Safety Report 20325727 (Version 2)
Quarter: 2022Q1

REPORT INFORMATION
  Report Type: Spontaneous
  Country: US (occurrence: US)
  Receive Date: 20220112
  Receipt Date: 20220117
  Transmission Date: 20220424
  Serious: No
  Sender: FDA-Public Use
  Company Number: US-ORGANON-O2201USA000584

PATIENT
  Sex: Female

DRUGS (1)
  1. ASMANEX HFA [Suspect]
     Active Substance: MOMETASONE FUROATE
     Dosage: 1 PUFF TWICE A DAY (ALSO REPORTED AS 2 PUFFS BY MOUTH DAILY ON THE CARTON)
     Route: 048

REACTIONS (4)
  - Product packaging quantity issue [Unknown]
  - Poor quality device used [Unknown]
  - Product label issue [Unknown]
  - No adverse event [Unknown]
